FAERS Safety Report 21928423 (Version 1)
Quarter: 2023Q1

REPORT INFORMATION
  Report Type: Spontaneous
  Country: US (occurrence: None)
  Receive Date: 20230130
  Receipt Date: 20230130
  Transmission Date: 20230418
  Serious: No
  Sender: FDA-Public Use
  Company Number: 2022A411949

PATIENT
  Age: 22918 Day
  Sex: Female
  Weight: 62.1 kg

DRUGS (4)
  1. CALQUENCE [Suspect]
     Active Substance: ACALABRUTINIB
     Indication: Chronic lymphocytic leukaemia
     Route: 048
     Dates: start: 20221128
  2. ALLOPURINOL [Concomitant]
     Active Substance: ALLOPURINOL
     Dosage: 300MG
  3. SALICYLATE [Concomitant]
     Active Substance: SALICYLIC ACID
  4. IBUPROFEN [Concomitant]
     Active Substance: IBUPROFEN

REACTIONS (1)
  - COVID-19 [Not Recovered/Not Resolved]

NARRATIVE: CASE EVENT DATE: 20221217
